FAERS Safety Report 9248645 (Version 1)
Quarter: 2013Q1

REPORT INFORMATION
  Report Type: Spontaneous
  Country: US (occurrence: None)
  Receive Date: 20130305
  Receipt Date: 20130305
  Transmission Date: 20140127
  Serious: Yes (Hospitalization)
  Sender: FDA-Public Use
  Company Number: 163-21880-12091835

PATIENT
  Age: 70 Year
  Sex: Male

DRUGS (5)
  1. REVLIMID [Suspect]
     Indication: MYELODYSPLASTIC SYNDROME
     Dosage: 1 IN 1 D
     Route: 048
     Dates: start: 20120823
  2. FENOFIBRATE [Suspect]
  3. ENALAPRIL MALEATE (ENALAPRIL MALEATE) [Suspect]
  4. FLOMAX (TAMSULOSIN HYDROCHLORIDE) [Suspect]
  5. VITAMIN C [Suspect]

REACTIONS (1)
  - Cardiac failure congestive [None]
